FAERS Safety Report 14239502 (Version 1)
Quarter: 2017Q4

REPORT INFORMATION
  Report Type: Spontaneous
  Country: US (occurrence: None)
  Receive Date: 20171129
  Receipt Date: 20171129
  Transmission Date: 20180321
  Serious: Yes (Hospitalization)
  Sender: FDA-Public Use
  Company Number: None

PATIENT
  Age: 60 Year
  Sex: Male

DRUGS (1)
  1. CEFTAROLINE [Suspect]
     Active Substance: CEFTAROLINE
     Indication: SPINAL CORD INFECTION
     Route: 042
     Dates: start: 20170516, end: 20170608

REACTIONS (6)
  - Pleural effusion [None]
  - Pancytopenia [None]
  - Pulmonary oedema [None]
  - Pneumonia [None]
  - Bradycardia [None]
  - Respiratory arrest [None]

NARRATIVE: CASE EVENT DATE: 20170605
